FAERS Safety Report 11375346 (Version 1)
Quarter: 2015Q3

REPORT INFORMATION
  Report Type: Spontaneous
  Country: US (occurrence: US)
  Receive Date: 20150813
  Receipt Date: 20150813
  Transmission Date: 20151125
  Serious: No
  Sender: FDA-Public Use
  Company Number: US-TAKEDA-2014MPI000314

PATIENT
  Age: 68 Year
  Sex: Male
  Weight: 105.6 kg

DRUGS (11)
  1. AMILORIDE [Concomitant]
     Active Substance: AMILORIDE
     Dosage: 5 MG, QD
     Route: 048
  2. SYNTHROID [Concomitant]
     Active Substance: LEVOTHYROXINE SODIUM
     Dosage: UNK
  3. AMLODIPINE BENAZEPRIL [Concomitant]
     Active Substance: AMLODIPINE BESYLATE\BENAZEPRIL HYDROCHLORIDE
     Dosage: DOSE REDUCED BY HALF 5MG/20 DAILY
     Route: 048
  4. CALCIUM CITRATE [Concomitant]
     Active Substance: CALCIUM CITRATE
     Dosage: 1000 MG, QD
     Route: 048
  5. DEXAMETHASONE. [Concomitant]
     Active Substance: DEXAMETHASONE
     Dosage: 20 MG, UNK
     Route: 048
  6. AMLODIPINE BENAZEPRIL [Concomitant]
     Active Substance: AMLODIPINE BESYLATE\BENAZEPRIL HYDROCHLORIDE
     Dosage: 5 MG/ 40 MG OR 10/MG/ 40 MG ONCE DAILY
     Route: 048
  7. VELCADE [Suspect]
     Active Substance: BORTEZOMIB
     Dosage: 3 MG, 1/WEEK
  8. CALCITRIOL. [Concomitant]
     Active Substance: CALCITRIOL
     Dosage: 0.25 ?G, QD
     Route: 048
  9. DEXAMETHASONE. [Concomitant]
     Active Substance: DEXAMETHASONE
     Indication: PLASMA CELL MYELOMA
     Dosage: 40 MG, UNK
     Route: 048
  10. VELCADE [Suspect]
     Active Substance: BORTEZOMIB
     Indication: PLASMA CELL MYELOMA
     Dosage: 3 MG, 2/WEEK
     Route: 042
  11. BUTRANS [Concomitant]
     Active Substance: BUPRENORPHINE
     Dosage: 20 ?G, 1/WEEK PATCH EVERY 7 DAYS

REACTIONS (4)
  - Dizziness [Recovering/Resolving]
  - Sinus tachycardia [Not Recovered/Not Resolved]
  - Orthostatic hypotension [Not Recovered/Not Resolved]
  - Weight decreased [Not Recovered/Not Resolved]
